FAERS Safety Report 19761682 (Version 1)
Quarter: 2021Q3

REPORT INFORMATION
  Report Type: Spontaneous
  Country: US (occurrence: US)
  Receive Date: 20210826
  Receipt Date: 20210826
  Transmission Date: 20211014
  Serious: Yes (Disabling)
  Sender: FDA-Public Use
  Company Number: None

PATIENT
  Age: 42 Year
  Sex: Male
  Weight: 68.04 kg

DRUGS (1)
  1. NEUTROGENA ULTRA SHEER [Suspect]
     Active Substance: AVOBENZONE\HOMOSALATE\OCTISALATE\OCTOCRYLENE\OXYBENZONE
     Indication: PROPHYLAXIS AGAINST SOLAR RADIATION
     Dosage: ?          OTHER STRENGTH:5.0 OZ;QUANTITY:1;?
     Dates: start: 20210707, end: 20210807

REACTIONS (4)
  - Irritability [None]
  - Skin exfoliation [None]
  - Pruritus [None]
  - Skin burning sensation [None]

NARRATIVE: CASE EVENT DATE: 20210707
